FAERS Safety Report 4265990-9 (Version None)
Quarter: 2004Q1

REPORT INFORMATION
  Report Type: 
  Country: None (occurrence: None)
  Receive Date: 20040106
  Receipt Date: 20031222
  Transmission Date: 20041129
  Serious: Yes (Life-Threatening, Hospitalization)
  Sender: FDA-Public Use
  Company Number: 2003-06494

PATIENT
  Age: 43 Year
  Sex: Female
  Weight: 74 kg

DRUGS (3)
  1. VIREAD [Suspect]
     Indication: HIV INFECTION
     Dosage: 300 MG QD PO
     Route: 048
     Dates: start: 20030412, end: 20030728
  2. EPIVIR [Suspect]
     Indication: HIV INFECTION
     Dosage: 300 MG QD PO
     Route: 048
     Dates: start: 20030412, end: 20030728
  3. SUSTIVA [Suspect]
     Indication: HIV INFECTION
     Dosage: 600 MG QD PO
     Route: 048
     Dates: start: 20030412, end: 20030728

REACTIONS (9)
  - CHOLESTASIS [None]
  - CYTOLYTIC HEPATITIS [None]
  - HEPATIC ATROPHY [None]
  - HEPATIC HAEMATOMA [None]
  - HEPATIC NECROSIS [None]
  - HEPATITIS FULMINANT [None]
  - LIVER TRANSPLANT [None]
  - PORTAL VEIN STENOSIS [None]
  - POST PROCEDURAL COMPLICATION [None]
